FAERS Safety Report 9162369 (Version 1)
Quarter: 2013Q1

REPORT INFORMATION
  Report Type: Spontaneous
  Country: US (occurrence: None)
  Receive Date: 20130222
  Receipt Date: 20130222
  Transmission Date: 20140127
  Serious: Yes (Disabling, Other)
  Sender: FDA-Public Use
  Company Number: LOC-0117

PATIENT
  Age: 49 Year
  Sex: Male

DRUGS (3)
  1. LOCOID [Suspect]
     Indication: ECZEMA
     Dosage: LOCAL APPLICATION, 2 APPLICATIONS DAILY
     Route: 061
     Dates: start: 20120727, end: 20120803
  2. FUCIDINE [Suspect]
     Indication: ECZEMA
     Dosage: LOCAL APPLICATION, 2 APPLICATIONS DAILY?
     Route: 061
     Dates: start: 20120727, end: 20120803
  3. DIASEPTYL (CHLORHEXIDINE) [Concomitant]

REACTIONS (5)
  - Intentional drug misuse [None]
  - Eczema [None]
  - Erysipelas [None]
  - Pruritus [None]
  - Impaired work ability [None]
